FAERS Safety Report 15347314 (Version 2)
Quarter: 2020Q1

REPORT INFORMATION
  Report Type: Spontaneous
  Country: US (occurrence: US)
  Receive Date: 20180904
  Receipt Date: 20200131
  Transmission Date: 20200409
  Serious: Yes (Other)
  Sender: FDA-Public Use
  Company Number: US-SA-2018SA171160

PATIENT
  Age: 38 Year
  Sex: Female
  Weight: 63.5 kg

DRUGS (9)
  1. HERCEPTIN [Concomitant]
     Active Substance: TRASTUZUMAB
     Indication: INVASIVE DUCTAL BREAST CARCINOMA
     Dosage: UNK UNK, UNK
     Route: 065
  2. WARFIN [Concomitant]
     Active Substance: WARFARIN
     Dosage: UNK UNK, UNK
     Route: 065
  3. PARAPLATIN [Concomitant]
     Active Substance: CARBOPLATIN
     Indication: INVASIVE DUCTAL BREAST CARCINOMA
     Dosage: UNK UNK, UNK
     Route: 065
  4. SINUS MEDICATION [Concomitant]
     Active Substance: UNSPECIFIED INGREDIENT
     Dosage: UNK UNK, UNK
     Route: 065
  5. TAXOTERE [Suspect]
     Active Substance: DOCETAXEL
     Dosage: 126-129MG
     Route: 042
     Dates: start: 20121213, end: 20121213
  6. ZITHROMAX [Concomitant]
     Active Substance: AZITHROMYCIN DIHYDRATE
     Dosage: UNK
     Dates: start: 2000
  7. TAXOTERE [Suspect]
     Active Substance: DOCETAXEL
     Indication: INVASIVE DUCTAL BREAST CARCINOMA
     Dosage: 126-129MG
     Route: 042
     Dates: start: 20120830, end: 20120830
  8. METOPROLOL. [Concomitant]
     Active Substance: METOPROLOL
     Dosage: UNK UNK, UNK
     Route: 065
  9. EFFEXOR [Concomitant]
     Active Substance: VENLAFAXINE HYDROCHLORIDE
     Dosage: UNK UNK, UNK
     Route: 065

REACTIONS (2)
  - Alopecia [Recovering/Resolving]
  - Psychological trauma [Unknown]

NARRATIVE: CASE EVENT DATE: 201209
